FAERS Safety Report 5366256-6 (Version None)
Quarter: 2007Q2

REPORT INFORMATION
  Report Type: 
  Country: None (occurrence: None)
  Receive Date: 20070619
  Receipt Date: 20070619
  Transmission Date: 20071010
  Serious: Yes (Life-Threatening)
  Sender: FDA-Public Use
  Company Number: None

PATIENT
  Age: 63 Year
  Sex: Male
  Weight: 73.2 kg

DRUGS (3)
  1. AMIODARONE 400 MG (SANDOZ) [Suspect]
     Indication: ATRIAL FIBRILLATION
     Dosage: 400 MG EVERY 8 HOURS PO
     Route: 048
     Dates: start: 20070302, end: 20070312
  2. METOPROLOL SUCCINATE [Suspect]
     Indication: CARDIAC FAILURE
     Dosage: 50 MG TWICE A DAY PO
     Route: 048
     Dates: start: 20070302, end: 20070312
  3. METOPROLOL SUCCINATE [Suspect]
     Indication: HYPERTENSION
     Dosage: 50 MG TWICE A DAY PO
     Route: 048
     Dates: start: 20070302, end: 20070312

REACTIONS (6)
  - BRADYCARDIA [None]
  - DIZZINESS [None]
  - ELECTROCARDIOGRAM QT PROLONGED [None]
  - HYPOTENSION [None]
  - URINE OUTPUT DECREASED [None]
  - VENTRICULAR TACHYCARDIA [None]
